FAERS Safety Report 9464140 (Version 2)
Quarter: 2016Q4

REPORT INFORMATION
  Report Type: Spontaneous
  Country: CA (occurrence: CA)
  Receive Date: 20130819
  Receipt Date: 20161109
  Transmission Date: 20170207
  Serious: Yes (Life-Threatening, Hospitalization)
  Sender: FDA-Public Use
  Company Number: CA-ROCHE-1262030

PATIENT
  Age: 46 Year
  Sex: Male
  Weight: 72.64 kg

DRUGS (18)
  1. LOPRESSOR [Concomitant]
     Active Substance: METOPROLOL TARTRATE
     Route: 065
  2. PREDNISONE. [Concomitant]
     Active Substance: PREDNISONE
  3. CELLCEPT [Suspect]
     Active Substance: MYCOPHENOLATE MOFETIL\MYCOPHENOLATE MOFETIL HYDROCHLORIDE
     Indication: PRODUCT USED FOR UNKNOWN INDICATION
     Route: 065
  4. EPREX [Suspect]
     Active Substance: ERYTHROPOIETIN
     Indication: PRODUCT USED FOR UNKNOWN INDICATION
     Route: 042
  5. CARDURA [Concomitant]
     Active Substance: DOXAZOSIN MESYLATE
     Route: 065
  6. MYFORTIC [Concomitant]
     Active Substance: MYCOPHENOLATE SODIUM
     Route: 065
  7. METOPROLOL TARTRATE. [Concomitant]
     Active Substance: METOPROLOL TARTRATE
  8. ALLOPURINOL. [Suspect]
     Active Substance: ALLOPURINOL
     Indication: PRODUCT USED FOR UNKNOWN INDICATION
     Route: 065
  9. ONE ALPHA [Suspect]
     Active Substance: ALFACALCIDOL
     Indication: PRODUCT USED FOR UNKNOWN INDICATION
     Route: 065
  10. CELLCEPT [Suspect]
     Active Substance: MYCOPHENOLATE MOFETIL\MYCOPHENOLATE MOFETIL HYDROCHLORIDE
     Route: 065
  11. ATACAND [Concomitant]
     Active Substance: CANDESARTAN CILEXETIL
     Route: 065
  12. IMURAN [Concomitant]
     Active Substance: AZATHIOPRINE
     Route: 065
  13. NORVASC [Concomitant]
     Active Substance: AMLODIPINE BESYLATE
     Route: 065
  14. ARANESP [Suspect]
     Active Substance: DARBEPOETIN ALFA
     Indication: PRODUCT USED FOR UNKNOWN INDICATION
     Route: 058
  15. LASIX [Concomitant]
     Active Substance: FUROSEMIDE
     Route: 065
  16. PANTOLOC [Concomitant]
     Active Substance: PANTOPRAZOLE SODIUM
     Route: 065
  17. ARANESP [Suspect]
     Active Substance: DARBEPOETIN ALFA
     Route: 058
  18. AMLODIPINE BESILATE [Concomitant]
     Active Substance: AMLODIPINE BESYLATE
     Route: 065

REACTIONS (3)
  - Aplasia pure red cell [Unknown]
  - Anti-erythropoietin antibody negative [Unknown]
  - Haemoglobin decreased [Unknown]
